FAERS Safety Report 7385311-2 (Version None)
Quarter: 2011Q1

REPORT INFORMATION
  Report Type: 
  Country: None (occurrence: None)
  Receive Date: 20110330
  Receipt Date: 20100628
  Transmission Date: 20110831
  Serious: No
  Sender: FDA-Public Use
  Company Number: US-MYLANLABS-2010S1011223

PATIENT
  Age: 43 Year
  Sex: Female

DRUGS (3)
  1. AMLODIPINE [Concomitant]
     Indication: BLOOD PRESSURE INCREASED
     Route: 048
     Dates: start: 20050101
  2. EMSAM [Suspect]
     Indication: DEPRESSION
     Dosage: QD
     Route: 062
     Dates: start: 20100501
  3. SYNTHROID [Concomitant]
     Indication: HYPOTHYROIDISM
     Route: 048
     Dates: start: 19920101

REACTIONS (2)
  - FATIGUE [None]
  - DIZZINESS [None]
